FAERS Safety Report 9551801 (Version 1)
Quarter: 2013Q3

REPORT INFORMATION
  Report Type: Spontaneous
  Country: US (occurrence: None)
  Receive Date: 20130724
  Receipt Date: 20130724
  Transmission Date: 20140515
  Serious: Yes (Hospitalization)
  Sender: FDA-Public Use
  Company Number: PHEH2012US013360

PATIENT
  Age: 66 Year
  Sex: Female

DRUGS (1)
  1. GLEEVEC [Suspect]
     Route: 048
     Dates: start: 20120316, end: 20120628

REACTIONS (11)
  - Diarrhoea [None]
  - Dehydration [None]
  - Nausea [None]
  - Vomiting [None]
  - Fatigue [None]
  - Anaemia [None]
  - Headache [None]
  - Abdominal pain upper [None]
  - Decreased appetite [None]
  - Abdominal discomfort [None]
  - Pain [None]
